FAERS Safety Report 4548535-5 (Version None)
Quarter: 2005Q1

REPORT INFORMATION
  Report Type: 
  Country: None (occurrence: None)
  Receive Date: 20050110
  Receipt Date: 20041206
  Transmission Date: 20050727
  Serious: Yes (Death, Hospitalization, Other)
  Sender: FDA-Public Use
  Company Number: JP-BRISTOL-MYERS SQUIBB COMPANY-12784252

PATIENT
  Age: 59 Year
  Sex: Male
  Weight: 51 kg

DRUGS (17)
  1. PACLITAXEL [Suspect]
     Indication: NON-SMALL CELL LUNG CANCER
     Dosage: START DATE:  27-SEP-2004.  80 - 100 MG/M2
     Route: 042
     Dates: start: 20041018, end: 20041018
  2. DEXAMETHASONE [Suspect]
     Route: 042
     Dates: start: 20040927, end: 20041018
  3. VOLTAREN-XR [Suspect]
     Indication: CANCER PAIN
     Dosage: STARTED PRIOR TO INFORMED CONSENT.
     Route: 048
     Dates: end: 20041130
  4. RANITIDINE [Concomitant]
     Route: 042
     Dates: start: 20040927, end: 20041018
  5. DIPHENHYDRAMINE HCL [Concomitant]
     Route: 042
     Dates: start: 20040927, end: 20041018
  6. KYTRIL [Concomitant]
     Indication: VOMITING
     Route: 042
     Dates: start: 20040927, end: 20041018
  7. DEPAKENE [Concomitant]
     Indication: CONVULSION
     Dosage: STARTED PRIOR TO INFORMED CONSENT.
     Route: 048
     Dates: end: 20041228
  8. MYSTAN [Concomitant]
     Indication: CONVULSION
     Dosage: STARTED PRIOR TO INFORMED CONSENT.
     Route: 048
     Dates: end: 20041104
  9. LANDSEN [Concomitant]
     Indication: CANCER PAIN
     Dosage: STARTED PRIOR TO INFORMED CONSENT.
     Route: 048
     Dates: end: 20041101
  10. MEXITIL [Concomitant]
     Indication: CANCER PAIN
     Dosage: STARTED PRIOR TO INFORMED CONSENT.
     Route: 048
     Dates: end: 20041026
  11. MUCOSTA [Concomitant]
     Indication: PROPHYLAXIS
     Dosage: STARTED PRIOR TO INFORMED CONSENT.
     Route: 048
  12. PURSENNIDE [Concomitant]
     Indication: CONSTIPATION
     Dosage: STARTED PRIOR TO INFORMED CONSENT.  12 - 24 MG DAILY
     Route: 048
     Dates: end: 20041009
  13. MAGNESIUM OXIDE [Concomitant]
     Indication: CONSTIPATION
     Route: 048
     Dates: end: 20041130
  14. LAXOBERON [Concomitant]
     Indication: CONSTIPATION
     Dosage: STARTED PRIOR TO INFORMED CONSENT.  ^OPTIMUM^
     Route: 048
     Dates: start: 20041010, end: 20041130
  15. NEO-MINOPHAGEN C [Concomitant]
     Route: 042
     Dates: start: 20041102, end: 20041109
  16. MYSTAN [Concomitant]
     Route: 048
     Dates: start: 20041112, end: 20041227
  17. LAXOBERON [Concomitant]
     Route: 048
     Dates: start: 20041216, end: 20041216

REACTIONS (3)
  - GASTRIC ULCER [None]
  - NON-SMALL CELL LUNG CANCER [None]
  - PNEUMONIA ASPIRATION [None]
